FAERS Safety Report 16234276 (Version 1)
Quarter: 2019Q2

REPORT INFORMATION
  Report Type: Spontaneous
  Country: US (occurrence: US)
  Receive Date: 20190321
  Receipt Date: 20190321
  Transmission Date: 20190711
  Serious: No
  Sender: FDA-Public Use
  Company Number: None

PATIENT
  Age: 41 Year
  Sex: Female

DRUGS (1)
  1. SUTENT [Suspect]
     Active Substance: SUNITINIB MALATE
     Dates: start: 20190321

REACTIONS (9)
  - Acne [None]
  - Arthralgia [None]
  - Dry skin [None]
  - Pain [None]
  - Skin fissures [None]
  - Diarrhoea [None]
  - Vomiting [None]
  - Erythema [None]
  - Decreased appetite [None]

NARRATIVE: CASE EVENT DATE: 20190321
